FAERS Safety Report 11847306 (Version 1)
Quarter: 2015Q4

REPORT INFORMATION
  Report Type: Spontaneous
  Country: US (occurrence: US)
  Receive Date: 20151217
  Receipt Date: 20151217
  Transmission Date: 20160305
  Serious: No
  Sender: FDA-Public Use
  Company Number: US-ROCHE-307737

PATIENT
  Age: 42 Year
  Sex: Female
  Weight: 61.2 kg

DRUGS (2)
  1. ZITHROMAX [Interacting]
     Active Substance: AZITHROMYCIN DIHYDRATE
     Indication: INFLUENZA
     Route: 048
     Dates: start: 20020125, end: 20020208
  2. TAMIFLU [Suspect]
     Active Substance: OSELTAMIVIR PHOSPHATE
     Indication: INFLUENZA
     Route: 048
     Dates: start: 20020125, end: 20020208

REACTIONS (4)
  - Nausea [Recovering/Resolving]
  - Dyspepsia [Recovering/Resolving]
  - Drug interaction [Unknown]
  - Headache [Recovering/Resolving]
